FAERS Safety Report 7900395-8 (Version None)
Quarter: 2011Q4

REPORT INFORMATION
  Report Type: 
  Country: None (occurrence: None)
  Receive Date: 20111108
  Receipt Date: 20111104
  Transmission Date: 20120403
  Serious: No
  Sender: FDA-Public Use
  Company Number: US-PFIZER INC-2011222916

PATIENT
  Age: 65 Year
  Sex: Male

DRUGS (8)
  1. RAMIPRIL [Concomitant]
     Dosage: 10MG, ^1/2 -0-0^
  2. ATACAND [Concomitant]
     Dosage: 32MG, ^1/2-0-1/2^
  3. LANTUS [Concomitant]
     Dosage: 100E/ML, ^30-0-0^
  4. ASPIRIN [Concomitant]
     Dosage: 100, ONCE IN THE MORNING
  5. LYRICA [Suspect]
     Indication: PAIN
     Dosage: 150 MG, MORNING AND EVENING
     Dates: start: 20110101, end: 20110101
  6. NITRENDIPIN ^STADA^ [Concomitant]
     Dosage: 20, ONCE IN THE MORNING
  7. TORASEMIDE [Concomitant]
     Dosage: 10MG, ^1/2-0-0^
  8. DICLOFENAC SODIUM [Concomitant]
     Indication: PAIN
     Dosage: UNK

REACTIONS (2)
  - PAIN [None]
  - MUSCULAR WEAKNESS [None]
